FAERS Safety Report 21558912 (Version 1)
Quarter: 2022Q4

REPORT INFORMATION
  Report Type: Spontaneous
  Country: US (occurrence: None)
  Receive Date: 20221104
  Receipt Date: 20221104
  Transmission Date: 20230113
  Serious: Yes (Hospitalization)
  Sender: FDA-Public Use
  Company Number: None

PATIENT
  Sex: Female
  Weight: 72.1 kg

DRUGS (3)
  1. DABRAFENIB [Suspect]
     Active Substance: DABRAFENIB
     Dates: end: 20221015
  2. PLAQUENIL [Suspect]
     Active Substance: HYDROXYCHLOROQUINE SULFATE
     Dosage: OTHER QUANTITY : 102 TABLET;?
     Dates: end: 20221015
  3. TRAMETINIB [Suspect]
     Active Substance: TRAMETINIB
     Dates: end: 20221015

REACTIONS (10)
  - Pyrexia [None]
  - Chills [None]
  - Myalgia [None]
  - Cough [None]
  - Nausea [None]
  - Vomiting [None]
  - Fatigue [None]
  - Asthenia [None]
  - Therapy interrupted [None]
  - Infusion related reaction [None]

NARRATIVE: CASE EVENT DATE: 20221016
